FAERS Safety Report 9766870 (Version 1)
Quarter: 2013Q4

REPORT INFORMATION
  Report Type: Spontaneous
  Country: US (occurrence: US)
  Receive Date: 20131217
  Receipt Date: 20131217
  Transmission Date: 20140711
  Serious: No
  Sender: FDA-Public Use
  Company Number: US-GLAXOSMITHKLINE-A1034226A

PATIENT
  Age: 52 Year
  Sex: Female

DRUGS (13)
  1. VOTRIENT [Suspect]
     Indication: LEIOMYOSARCOMA METASTATIC
     Dosage: 600MG PER DAY
     Route: 048
     Dates: start: 20130619
  2. VITAMIN D [Concomitant]
  3. GABAPENTIN [Concomitant]
  4. RITALIN [Concomitant]
  5. ZANTAC [Concomitant]
     Route: 048
  6. ASPIRIN [Concomitant]
  7. IBUPROFEN [Concomitant]
  8. RESTORIL [Concomitant]
  9. ZOMETA [Concomitant]
  10. OXYCONTIN [Concomitant]
  11. MIRALAX [Concomitant]
  12. FLONASE [Concomitant]
  13. ZOFRAN [Concomitant]

REACTIONS (1)
  - Palmar-plantar erythrodysaesthesia syndrome [Unknown]
